FAERS Safety Report 8041042-7 (Version None)
Quarter: 2012Q1

REPORT INFORMATION
  Report Type: 
  Country: None (occurrence: None)
  Receive Date: 20120109
  Receipt Date: 20120102
  Transmission Date: 20120608
  Serious: Yes (Other)
  Sender: FDA-Public Use
  Company Number: 2012S1000004

PATIENT
  Age: 66 Year
  Sex: Male

DRUGS (14)
  1. MEXAZOLAM [Concomitant]
  2. LIVAZO (PITAVASTATIN) [Suspect]
     Indication: PRODUCT USED FOR UNKNOWN INDICATION
     Dosage: PO
     Route: 048
     Dates: start: 20111128
  3. WARFARIN SODIUM [Suspect]
     Indication: PRODUCT USED FOR UNKNOWN INDICATION
  4. ENALAPRIL MALEATE [Concomitant]
  5. IBANDRONATE SODIUM [Concomitant]
  6. ISOSORBIDE DINITRATE [Concomitant]
  7. ISOSORBIDE DINITRATE [Concomitant]
  8. CALCIUM CARBONATE [Concomitant]
  9. CARVEDILOL [Concomitant]
  10. METFORMIN HCL [Concomitant]
  11. ALFUZOSIN HYDROCHLORIDE [Concomitant]
  12. AMIODARONE HCL [Concomitant]
  13. FUROSEMIDE [Concomitant]
  14. CHOLECALCIFEROL [Concomitant]

REACTIONS (1)
  - INTERNATIONAL NORMALISED RATIO INCREASED [None]
